FAERS Safety Report 5110405-1 (Version None)
Quarter: 2006Q3

REPORT INFORMATION
  Report Type: 
  Country: None (occurrence: None)
  Receive Date: 20060921
  Receipt Date: 20060726
  Transmission Date: 20061208
  Serious: Yes (Death, Hospitalization, Disabling, Other)
  Sender: FDA-Public Use
  Company Number: US-BAYER-200614818BWH

PATIENT
  Age: 79 Year
  Sex: Male
  Weight: 89 kg

DRUGS (11)
  1. NEXAVAR [Suspect]
     Indication: RENAL CELL CARCINOMA STAGE UNSPECIFIED
     Dosage: TOTAL DAILY DOSE: 800 MG  UNIT DOSE: 200 MG
     Route: 048
     Dates: start: 20060428, end: 20060601
  2. NEXAVAR [Suspect]
     Dosage: TOTAL DAILY DOSE: 400 MG  UNIT DOSE: 200 MG
     Route: 048
     Dates: start: 20060601, end: 20060712
  3. HUMULIN 70/30 [Concomitant]
     Indication: DIABETES MELLITUS
     Route: 058
  4. GLUCOPHAGE [Concomitant]
     Indication: DIABETES MELLITUS
     Route: 048
  5. LUPRON DEPOT [Concomitant]
     Route: 030
  6. TOPROL-XL [Concomitant]
     Indication: HYPERTENSION
     Route: 048
     Dates: end: 20060401
  7. TOPROL-XL [Concomitant]
     Route: 048
     Dates: start: 20060401
  8. FLOMAX [Concomitant]
     Route: 048
  9. RESTORIL [Concomitant]
  10. LIPITOR [Concomitant]
  11. LOTENSIN [Concomitant]

REACTIONS (19)
  - ABASIA [None]
  - ABDOMINAL PAIN UPPER [None]
  - ANXIETY [None]
  - BACK PAIN [None]
  - BLOOD PRESSURE INCREASED [None]
  - CHEST PAIN [None]
  - CONSTIPATION [None]
  - DECREASED APPETITE [None]
  - DIARRHOEA [None]
  - HAEMOPTYSIS [None]
  - HEART RATE INCREASED [None]
  - INTESTINAL INFARCTION [None]
  - MASS [None]
  - METASTASES TO LUNG [None]
  - OSTEOLYSIS [None]
  - PAIN [None]
  - PATHOLOGICAL FRACTURE [None]
  - POOR QUALITY SLEEP [None]
  - WEIGHT DECREASED [None]
